FAERS Safety Report 6523190-3 (Version None)
Quarter: 2009Q4

REPORT INFORMATION
  Report Type: 
  Country: None (occurrence: None)
  Receive Date: 20091222
  Receipt Date: 20091201
  Transmission Date: 20100525
  Serious: Yes (Life-Threatening, Hospitalization)
  Sender: FDA-Public Use
  Company Number: DSA_42087_2009

PATIENT
  Sex: Female

DRUGS (4)
  1. DILTIAZEM [Suspect]
     Indication: HYPERTENSION
     Dosage: DF INTRAVENOUSLY (NOT OTHERWISE SPECIFIED)
     Route: 042
     Dates: start: 20090303, end: 20090303
  2. SEVOFLURANE [Suspect]
     Indication: INDUCTION OF ANAESTHESIA
     Dosage: 6 DF
     Dates: start: 20090303, end: 20090303
  3. VECURONIUM (VECURONIUM) 8 MG [Suspect]
     Indication: INDUCTION OF ANAESTHESIA
     Dosage: 8 MG QD
     Dates: start: 20090303, end: 20090303
  4. ISOFLURANE [Suspect]
     Indication: ANAESTHESIA
     Dosage: 1 DF QD
     Dates: start: 20090303, end: 20090303

REACTIONS (7)
  - ATRIOVENTRICULAR DISSOCIATION [None]
  - BLOOD CALCIUM DECREASED [None]
  - BLOOD SODIUM DECREASED [None]
  - BRADYCARDIA [None]
  - CARDIAC ARREST [None]
  - NO THERAPEUTIC RESPONSE [None]
  - PROCEDURAL COMPLICATION [None]
